FAERS Safety Report 4771284-5 (Version None)
Quarter: 2005Q3

REPORT INFORMATION
  Report Type: 
  Country: None (occurrence: None)
  Receive Date: 20050914
  Receipt Date: 20050825
  Transmission Date: 20060218
  Serious: Yes (Other)
  Sender: FDA-Public Use
  Company Number: USA0508106482

PATIENT
  Age: 76 Year
  Sex: Female

DRUGS (5)
  1. FORTEO [Suspect]
     Indication: OSTEOPOROSIS
     Dates: start: 20041101
  2. TRICOR [Concomitant]
  3. CELEBREX [Concomitant]
  4. PREVACID [Concomitant]
  5. LISINOPRIL [Concomitant]

REACTIONS (4)
  - DEHYDRATION [None]
  - PHARMACEUTICAL PRODUCT COMPLAINT [None]
  - RENAL DISORDER [None]
  - RENAL FAILURE [None]
